FAERS Safety Report 6256748-X (Version None)
Quarter: 2009Q3

REPORT INFORMATION
  Report Type: 
  Country: None (occurrence: None)
  Receive Date: 20090706
  Receipt Date: 20090625
  Transmission Date: 20100115
  Serious: Yes (Death)
  Sender: FDA-Public Use
  Company Number: US-BAXTER-2009BH009130

PATIENT
  Age: 26 Year
  Sex: Male
  Weight: 53 kg

DRUGS (1)
  1. KIOVIG [Suspect]
     Indication: IMMUNODEFICIENCY COMMON VARIABLE
     Route: 042
     Dates: start: 19940301, end: 20090119

REACTIONS (1)
  - GASTRIC CANCER STAGE IV [None]
